FAERS Safety Report 12072984 (Version 1)
Quarter: 2016Q1

REPORT INFORMATION
  Report Type: Spontaneous
  Country: FI (occurrence: FI)
  Receive Date: 20160212
  Receipt Date: 20160212
  Transmission Date: 20160526
  Serious: Yes (Hospitalization, Other)
  Sender: FDA-Public Use
  Company Number: FI-GE HEALTHCARE MEDICAL DIAGNOSTICS-OMPQ-PR-1602S-0155

PATIENT
  Age: 60 Year

DRUGS (2)
  1. OMNIPAQUE [Suspect]
     Active Substance: IOHEXOL
     Indication: DIAGNOSTIC PROCEDURE
  2. OMNIPAQUE [Suspect]
     Active Substance: IOHEXOL
     Indication: PRODUCT USED FOR UNKNOWN INDICATION
     Route: 042
     Dates: start: 20160129, end: 20160129

REACTIONS (5)
  - Blood pressure decreased [Unknown]
  - Cough [Unknown]
  - Rash erythematous [Unknown]
  - Malaise [Unknown]
  - Nasal congestion [Unknown]

NARRATIVE: CASE EVENT DATE: 20160129
